FAERS Safety Report 7959959-8 (Version None)
Quarter: 2011Q4

REPORT INFORMATION
  Report Type: 
  Country: None (occurrence: None)
  Receive Date: 20111206
  Receipt Date: 20111201
  Transmission Date: 20120403
  Serious: Yes (Hospitalization, Other)
  Sender: FDA-Public Use
  Company Number: BR-ABBOTT-11P-020-0862064-00

PATIENT
  Sex: Female
  Weight: 75 kg

DRUGS (9)
  1. ETODOLAC [Concomitant]
     Indication: PAIN
  2. CALCIUM [Concomitant]
     Indication: BONE EROSION
  3. METHOTREXATE [Concomitant]
     Indication: RHEUMATOID ARTHRITIS
     Route: 048
  4. HUMIRA [Suspect]
  5. PARACETAMOL W/CAFFEINE/CARISOPRODOL/DICLOFENA [Concomitant]
     Indication: ANTIINFLAMMATORY THERAPY
  6. HUMIRA [Suspect]
     Indication: RHEUMATOID ARTHRITIS
     Dates: start: 20090601
  7. ETODOLAC [Concomitant]
     Indication: ANTIINFLAMMATORY THERAPY
  8. PARACETAMOL W/CAFFEINE/CARISOPRODOL/DICLOFENA [Concomitant]
     Indication: OSTEOARTHRITIS
     Dosage: TORSILAX
     Route: 048
  9. ETODOLAC [Concomitant]
     Indication: OSTEOARTHRITIS
     Route: 048

REACTIONS (8)
  - MOBILITY DECREASED [None]
  - PAIN IN EXTREMITY [None]
  - DEVICE DISLOCATION [None]
  - URINARY TRACT INFECTION [None]
  - DYSPHONIA [None]
  - HIP ARTHROPLASTY [None]
  - MEDICAL DEVICE COMPLICATION [None]
  - BONE EROSION [None]
